FAERS Safety Report 10545053 (Version 1)
Quarter: 2014Q4

REPORT INFORMATION
  Report Type: Spontaneous
  Country: US (occurrence: US)
  Receive Date: 20141027
  Receipt Date: 20141027
  Transmission Date: 20150529
  Serious: Yes (Hospitalization)
  Sender: FDA-Public Use
  Company Number: US-SA-2014SA142789

PATIENT
  Age: 69 Year
  Sex: Male
  Weight: 81.1 kg

DRUGS (17)
  1. COZAAR [Suspect]
     Active Substance: LOSARTAN POTASSIUM
     Route: 065
  2. BLINDED THERAPY [Suspect]
     Active Substance: INVESTIGATIONAL PRODUCT
     Indication: RENAL CELL CARCINOMA
     Dosage: BLINDED THERAPY
     Route: 065
     Dates: start: 20061213, end: 20070101
  3. TOPROL XL [Suspect]
     Active Substance: METOPROLOL SUCCINATE
     Route: 065
  4. LEXAPRO [Concomitant]
     Active Substance: ESCITALOPRAM OXALATE
  5. HYDROCODONE [Concomitant]
     Active Substance: HYDROCODONE
  6. LIPITOR [Concomitant]
     Active Substance: ATORVASTATIN CALCIUM
  7. AMBIEN [Concomitant]
     Active Substance: ZOLPIDEM TARTRATE
  8. METFORMIN [Concomitant]
     Active Substance: METFORMIN HYDROCHLORIDE
  9. PREDNISONE. [Concomitant]
     Active Substance: PREDNISONE
  10. CLONIDINE. [Suspect]
     Active Substance: CLONIDINE
     Dosage: DOSE INCREASED
     Route: 065
  11. LASIX [Suspect]
     Active Substance: FUROSEMIDE
     Route: 065
  12. CLONIDINE. [Suspect]
     Active Substance: CLONIDINE
     Route: 065
  13. ENBREL [Concomitant]
     Active Substance: ETANERCEPT
  14. MICARDIS [Suspect]
     Active Substance: TELMISARTAN
     Route: 065
  15. FLOMAX [Suspect]
     Active Substance: TAMSULOSIN HYDROCHLORIDE
     Route: 065
  16. GLIPIZIDE. [Concomitant]
     Active Substance: GLIPIZIDE
  17. NEXIUM [Concomitant]
     Active Substance: ESOMEPRAZOLE MAGNESIUM

REACTIONS (5)
  - Mucosal inflammation [Unknown]
  - Hypotension [Unknown]
  - Hypertension [Unknown]
  - Fatigue [Unknown]
  - Headache [Unknown]

NARRATIVE: CASE EVENT DATE: 20061220
